FAERS Safety Report 9697923 (Version 2)
Quarter: 2014Q2

REPORT INFORMATION
  Report Type: Report from Study
  Country: US (occurrence: US)
  Receive Date: 20131120
  Receipt Date: 20140617
  Transmission Date: 20141212
  Serious: Yes (Hospitalization)
  Sender: FDA-Public Use
  Company Number: US-ALEXION-A201302915

PATIENT
  Sex: 0

DRUGS (2)
  1. SOLIRIS [Suspect]
     Indication: HAEMOLYTIC URAEMIC SYNDROME
     Dosage: UNK
     Route: 042
  2. PROCRIT                            /00909301/ [Concomitant]
     Indication: ANAEMIA
     Dosage: WEEKLY INJECTION

REACTIONS (3)
  - Unevaluable event [Unknown]
  - Viral infection [Unknown]
  - Pyrexia [Unknown]
